FAERS Safety Report 8068298-9 (Version None)
Quarter: 2012Q1

REPORT INFORMATION
  Report Type: 
  Country: None (occurrence: None)
  Receive Date: 20120124
  Receipt Date: 20111006
  Transmission Date: 20120608
  Serious: No
  Sender: FDA-Public Use
  Company Number: US-AMGEN-USASP2011051652

PATIENT
  Sex: Female

DRUGS (3)
  1. PROLIA [Suspect]
     Indication: OSTEOPOROSIS POSTMENOPAUSAL
     Dosage: 60 MG, Q6MO
     Dates: start: 20110816
  2. CALTRATE                           /00751519/ [Concomitant]
  3. PROTONIX [Concomitant]

REACTIONS (4)
  - FUNGAL INFECTION [None]
  - BLOOD PRESSURE INCREASED [None]
  - CANDIDIASIS [None]
  - VULVOVAGINAL MYCOTIC INFECTION [None]
